FAERS Safety Report 18567921 (Version 1)
Quarter: 2020Q4

REPORT INFORMATION
  Report Type: Spontaneous
  Country: US (occurrence: US)
  Receive Date: 20201202
  Receipt Date: 20201202
  Transmission Date: 20210114
  Serious: No
  Sender: FDA-Public Use
  Company Number: US-LUPIN PHARMACEUTICALS INC.-2020-02070

PATIENT
  Age: 41 Year
  Sex: Male

DRUGS (2)
  1. ESCITALOPRAM [Suspect]
     Active Substance: ESCITALOPRAM OXALATE
     Dosage: 5 MILLIGRAM, QD
     Route: 065
  2. ESCITALOPRAM [Suspect]
     Active Substance: ESCITALOPRAM OXALATE
     Indication: SLEEP PARALYSIS
     Dosage: 10 MILLIGRAM, QD, LATER TITRATED TO 10 MG
     Route: 065

REACTIONS (3)
  - Drug effective for unapproved indication [Unknown]
  - Irritability [Recovered/Resolved]
  - Off label use [Unknown]
